FAERS Safety Report 17932781 (Version 4)
Quarter: 2020Q4

REPORT INFORMATION
  Report Type: Report from Study
  Country: US (occurrence: US)
  Receive Date: 20200624
  Receipt Date: 20201203
  Transmission Date: 20210113
  Serious: No
  Sender: FDA-Public Use
  Company Number: NVSC2020US177514

PATIENT
  Sex: Female

DRUGS (2)
  1. COSENTYX [Suspect]
     Active Substance: SECUKINUMAB
     Indication: PSORIASIS
     Route: 058
  2. COSENTYX [Suspect]
     Active Substance: SECUKINUMAB
     Indication: PSORIASIS
     Dosage: 300 MG, QW, (BENEATH THE SKIN, USUALLY VIA INJECTION)
     Route: 058

REACTIONS (5)
  - Therapeutic product effect incomplete [Unknown]
  - Urinary tract infection [Unknown]
  - Injection site pain [Unknown]
  - Dyspepsia [Unknown]
  - Injection site bruising [Unknown]
